FAERS Safety Report 5370503-4 (Version None)
Quarter: 2007Q2

REPORT INFORMATION
  Report Type: 
  Country: None (occurrence: None)
  Receive Date: 20070626
  Receipt Date: 20070507
  Transmission Date: 20071010
  Serious: Yes (Hospitalization, Other)
  Sender: FDA-Public Use
  Company Number: AT-ASTRAZENECA-2006PK01544

PATIENT
  Age: 15952 Day
  Sex: Female

DRUGS (3)
  1. NOLVADEX [Suspect]
     Indication: BREAST CANCER
     Route: 048
     Dates: start: 20031210, end: 20040826
  2. ZOLEDRONIC ACID [Suspect]
     Indication: BREAST CANCER
     Dates: start: 20031218, end: 20040426
  3. ZOLADEX [Concomitant]
     Indication: BREAST CANCER
     Dates: start: 20031210, end: 20040426

REACTIONS (1)
  - UTERINE LEIOMYOMA [None]
